FAERS Safety Report 4515003-6 (Version None)
Quarter: 2004Q4

REPORT INFORMATION
  Report Type: 
  Country: None (occurrence: None)
  Receive Date: 20041129
  Receipt Date: 20041129
  Transmission Date: 20050328
  Serious: Yes (Congenital Anomaly, Other)
  Sender: FDA-Public Use
  Company Number: None

PATIENT
  Age: 49 Year
  Sex: Male
  Weight: 80.7403 kg

DRUGS (1)
  1. BEXTRA [Suspect]
     Indication: NEUROPATHIC PAIN
     Dosage: 120MG    2X DAY    ORAL
     Route: 048
     Dates: start: 20030505, end: 20030527

REACTIONS (2)
  - ANAL HAEMORRHAGE [None]
  - HAEMORRHAGE [None]
